FAERS Safety Report 10798182 (Version 1)
Quarter: 2015Q1

REPORT INFORMATION
  Report Type: Report from Study
  Country: US (occurrence: US)
  Receive Date: 20150216
  Receipt Date: 20150216
  Transmission Date: 20150721
  Serious: No
  Sender: FDA-Public Use
  Company Number: US-ABBVIE-14K-163-1233061-00

PATIENT
  Age: 70 Year
  Sex: Female

DRUGS (4)
  1. HUMIRA [Suspect]
     Active Substance: ADALIMUMAB
     Indication: CROHN^S DISEASE
     Dosage: LOADING DOSE
     Dates: start: 20140327, end: 20140327
  2. HUMIRA [Suspect]
     Active Substance: ADALIMUMAB
     Dates: start: 20140424
  3. JANUVIA [Concomitant]
     Active Substance: SITAGLIPTIN PHOSPHATE
     Indication: DIABETES MELLITUS
  4. HUMIRA [Suspect]
     Active Substance: ADALIMUMAB
     Dosage: LOADING DOSE
     Dates: start: 20140410, end: 20140410

REACTIONS (7)
  - Injection site pain [Recovered/Resolved]
  - Tendon pain [Recovered/Resolved]
  - Wound complication [Not Recovered/Not Resolved]
  - Wound drainage [Not Recovered/Not Resolved]
  - Local swelling [Unknown]
  - Skin lesion [Not Recovered/Not Resolved]
  - Dermabrasion [Not Recovered/Not Resolved]

NARRATIVE: CASE EVENT DATE: 20140327
